FAERS Safety Report 21264267 (Version 1)
Quarter: 2022Q3

REPORT INFORMATION
  Report Type: Spontaneous
  Country: DE (occurrence: DE)
  Receive Date: 20220829
  Receipt Date: 20220829
  Transmission Date: 20221026
  Serious: Yes (Other)
  Sender: FDA-Public Use
  Company Number: DE-PFIZER INC-PV202200042383

PATIENT
  Sex: Female

DRUGS (2)
  1. BEVACIZUMAB [Suspect]
     Active Substance: BEVACIZUMAB
     Indication: Breast cancer
     Route: 065
     Dates: start: 202006
  2. PACLITAXEL [Concomitant]
     Active Substance: PACLITAXEL
     Dosage: UNK
     Dates: start: 202006

REACTIONS (6)
  - General physical health deterioration [Unknown]
  - Abscess [Unknown]
  - Fatigue [Unknown]
  - Bone pain [Unknown]
  - Constipation [Unknown]
  - Appendicitis [Unknown]

NARRATIVE: CASE EVENT DATE: 20210701
